FAERS Safety Report 4929704-9 (Version None)
Quarter: 2006Q1

REPORT INFORMATION
  Report Type: 
  Country: None (occurrence: None)
  Receive Date: 20060301
  Receipt Date: 20050816
  Transmission Date: 20060701
  Serious: Yes (Hospitalization)
  Sender: FDA-Public Use
  Company Number: US-MERCK-0508USA03050

PATIENT
  Age: 65 Year
  Sex: Male
  Weight: 111 kg

DRUGS (9)
  1. VIOXX [Suspect]
     Indication: ARTHRITIS
     Route: 048
     Dates: start: 20000501, end: 20040930
  2. ZOCOR [Concomitant]
     Route: 048
  3. LASIX [Concomitant]
     Route: 048
  4. ASPIRIN [Concomitant]
     Route: 048
  5. VASOTEC RPD [Concomitant]
     Route: 048
  6. GLUCOPHAGE [Concomitant]
     Route: 048
  7. TENORMIN [Concomitant]
     Route: 048
  8. PLAVIX [Concomitant]
     Route: 048
  9. INSULIN, BIPHASIC ISOPHANE [INJECTION] [Concomitant]
     Route: 051

REACTIONS (3)
  - ANGINA UNSTABLE [None]
  - BACK DISORDER [None]
  - CORONARY ARTERY OCCLUSION [None]
